FAERS Safety Report 4962443-7 (Version None)
Quarter: 2006Q2

REPORT INFORMATION
  Report Type: 
  Country: None (occurrence: None)
  Receive Date: 20060403
  Receipt Date: 20060403
  Transmission Date: 20061013
  Serious: No
  Sender: FDA-Public Use
  Company Number: None

PATIENT
  Sex: Female
  Weight: 61.2356 kg

DRUGS (1)
  1. METHYLENE BLUE 1% (10MG/ML) , AMERICAN REGENT [Suspect]
     Indication: BIOPSY LYMPH GLAND
     Dosage: ONCE INTRADERM
     Route: 023
     Dates: start: 20060302

REACTIONS (2)
  - ERYTHEMA [None]
  - PROCEDURAL SITE REACTION [None]
